FAERS Safety Report 12621899 (Version 1)
Quarter: 2016Q3

REPORT INFORMATION
  Report Type: Spontaneous
  Country: US (occurrence: US)
  Receive Date: 20160804
  Receipt Date: 20160804
  Transmission Date: 20161109
  Serious: Yes (Other)
  Sender: FDA-Public Use
  Company Number: US-BAYER-2016-148932

PATIENT
  Age: 53 Year
  Sex: Male

DRUGS (3)
  1. HEPARIN [Interacting]
     Active Substance: HEPARIN SODIUM
  2. TICAGRELOR [Interacting]
     Active Substance: TICAGRELOR
     Indication: STENT PATENCY MAINTENANCE
  3. ACETYLSALICYLIC ACID({=100 MG) [Suspect]
     Active Substance: ASPIRIN
     Indication: STENT PATENCY MAINTENANCE

REACTIONS (3)
  - Labelled drug-drug interaction medication error [None]
  - Drug administration error [None]
  - Pulmonary haemorrhage [None]
